FAERS Safety Report 13828904 (Version 1)
Quarter: 2017Q3

REPORT INFORMATION
  Report Type: Spontaneous
  Country: US (occurrence: US)
  Receive Date: 20170803
  Receipt Date: 20170803
  Transmission Date: 20171127
  Serious: Yes (Other)
  Sender: FDA-Public Use
  Company Number: US-LUPIN (EUROPE) LIMITED-2016-04626

PATIENT
  Sex: Female
  Weight: 61.22 kg

DRUGS (2)
  1. MY WAY [Suspect]
     Active Substance: LEVONORGESTREL
     Indication: CONTRACEPTION
     Dosage: IN THE MORNING
     Route: 048
     Dates: start: 2014, end: 2014
  2. MY WAY [Suspect]
     Active Substance: LEVONORGESTREL
     Dosage: 1 DF
     Route: 048
     Dates: start: 201608, end: 201608

REACTIONS (1)
  - Pregnancy on oral contraceptive [Unknown]

NARRATIVE: CASE EVENT DATE: 2014
